FAERS Safety Report 16454167 (Version 1)
Quarter: 2019Q2

REPORT INFORMATION
  Report Type: Spontaneous
  Country: US (occurrence: US)
  Receive Date: 20190619
  Receipt Date: 20190619
  Transmission Date: 20190711
  Serious: No
  Sender: FDA-Public Use
  Company Number: US-ROCHE-2195062

PATIENT
  Sex: Female
  Weight: 80.81 kg

DRUGS (3)
  1. TOPIRAMATE. [Concomitant]
     Active Substance: TOPIRAMATE
     Indication: PAIN
     Route: 065
     Dates: start: 20180911
  2. PREDNISONE. [Concomitant]
     Active Substance: PREDNISONE
     Indication: PAIN
     Route: 065
     Dates: start: 20180705
  3. ACTEMRA [Suspect]
     Active Substance: TOCILIZUMAB
     Indication: PRODUCT USED FOR UNKNOWN INDICATION
     Dosage: ONCE A WEEK ;ONGOING: YES,INJECTION
     Route: 058

REACTIONS (4)
  - Pruritus [Unknown]
  - Ill-defined disorder [Not Recovered/Not Resolved]
  - Rash erythematous [Not Recovered/Not Resolved]
  - Pain [Unknown]
